FAERS Safety Report 20423179 (Version 3)
Quarter: 2022Q2

REPORT INFORMATION
  Report Type: Report from Study
  Country: US (occurrence: US)
  Receive Date: 20220203
  Receipt Date: 20220504
  Transmission Date: 20220720
  Serious: Yes (Other)
  Sender: FDA-Public Use
  Company Number: US-BAYER-2022A017556

PATIENT
  Age: 64 Year
  Sex: Female

DRUGS (3)
  1. STIVARGA [Suspect]
     Active Substance: REGORAFENIB
     Indication: Gastrointestinal stromal tumour
     Dosage: 80 MG, QD ON DAYS 1-21 OF A 28 DAY CYCLE
     Dates: start: 20211126
  2. STIVARGA [Suspect]
     Active Substance: REGORAFENIB
     Indication: Gastrointestinal stromal tumour
     Dosage: UNK
  3. STIVARGA [Suspect]
     Active Substance: REGORAFENIB
     Indication: Gastrointestinal stromal tumour
     Dosage: 80 MG, QD (DAYS 1 THROUGH 21 OF A 28 DAY CYCLE)

REACTIONS (14)
  - Productive cough [Unknown]
  - Haemorrhage [Unknown]
  - Hypoaesthesia [Unknown]
  - Skin hypertrophy [Unknown]
  - Skin fissures [Unknown]
  - Alopecia [Unknown]
  - Balance disorder [Unknown]
  - Blood pressure increased [Unknown]
  - Off label use [None]
  - Product dose omission issue [Unknown]
  - Paraesthesia [Unknown]
  - Pain in extremity [Unknown]
  - Hypoaesthesia [Unknown]
  - Muscle spasms [Unknown]

NARRATIVE: CASE EVENT DATE: 20211126
